FAERS Safety Report 24771952 (Version 1)
Quarter: 2024Q4

REPORT INFORMATION
  Report Type: Spontaneous
  Country: US (occurrence: US)
  Receive Date: 20241224
  Receipt Date: 20241224
  Transmission Date: 20250115
  Serious: Yes (Other)
  Sender: MERCK
  Company Number: US-009507513-2412USA006658

PATIENT
  Age: 83 Year
  Sex: Male

DRUGS (1)
  1. KEYTRUDA [Suspect]
     Active Substance: PEMBROLIZUMAB
     Indication: Gastric cancer

REACTIONS (3)
  - Acute kidney injury [Recovered/Resolved]
  - Tubulointerstitial nephritis [Recovered/Resolved]
  - Kidney fibrosis [Recovered/Resolved]
